FAERS Safety Report 5746599-4 (Version None)
Quarter: 2008Q2

REPORT INFORMATION
  Report Type: 
  Country: None (occurrence: None)
  Receive Date: 20080522
  Receipt Date: 20080326
  Transmission Date: 20081010
  Serious: Yes (Other)
  Sender: FDA-Public Use
  Company Number: US-ABBOTT-07P-163-0420844-00

PATIENT
  Sex: Female
  Weight: 83.99 kg

DRUGS (22)
  1. HUMIRA [Suspect]
     Indication: CROHN'S DISEASE
     Dates: start: 20070322, end: 20070322
  2. HUMIRA [Suspect]
     Dates: start: 20070524
  3. VITAMIN TAB [Concomitant]
     Indication: PREGNANCY
     Route: 048
     Dates: start: 20070206, end: 20070516
  4. VITAMIN TAB [Concomitant]
     Route: 048
     Dates: start: 20070517, end: 20070721
  5. REMICADE [Concomitant]
     Indication: CROHN'S DISEASE
     Route: 050
     Dates: start: 20070320, end: 20070320
  6. PREDNISONE TAB [Concomitant]
     Indication: CROHN'S DISEASE
     Route: 048
     Dates: start: 20070101, end: 20070115
  7. PREDNISONE TAB [Concomitant]
     Route: 048
     Dates: start: 20070116, end: 20070130
  8. PREDNISONE TAB [Concomitant]
     Route: 048
     Dates: start: 20070131, end: 20070214
  9. PREDNISONE TAB [Concomitant]
     Route: 048
     Dates: start: 20070215, end: 20070301
  10. PREDNISONE TAB [Concomitant]
     Route: 048
     Dates: start: 20070302, end: 20070306
  11. PREDNISONE TAB [Concomitant]
     Route: 048
     Dates: start: 20070303, end: 20070405
  12. PREDNISONE TAB [Concomitant]
     Route: 048
     Dates: start: 20070518, end: 20070628
  13. LANSOPRAZOLE [Concomitant]
     Indication: GASTRIC ULCER
     Route: 048
     Dates: start: 20061222, end: 20071003
  14. JUICE PLUS CAPSULES [Concomitant]
     Indication: DRUG USE FOR UNKNOWN INDICATION
     Route: 048
     Dates: start: 20070215, end: 20070301
  15. ACETAMINOPHEN [Concomitant]
     Indication: HEADACHE
     Route: 048
     Dates: start: 20061222, end: 20071003
  16. CALCIUM CARBONATE [Concomitant]
     Indication: DYSPEPSIA
     Route: 048
     Dates: start: 20061222, end: 20070517
  17. IRON [Concomitant]
     Indication: DRUG USE FOR UNKNOWN INDICATION
     Route: 048
     Dates: start: 20070722, end: 20071003
  18. MONISTAT 7 [Concomitant]
     Indication: FUNGAL INFECTION
     Route: 061
     Dates: start: 20070815, end: 20070822
  19. METRONIDAZOLE HCL [Concomitant]
     Indication: FUNGAL INFECTION
     Route: 061
     Dates: start: 20070814, end: 20070818
  20. FLINTSTONES MULTIPLE VITAMINS [Concomitant]
     Indication: PREGNANCY
     Route: 048
     Dates: start: 20070722, end: 20071003
  21. OMEPRAZOLE [Concomitant]
     Indication: DYSPEPSIA
     Route: 048
     Dates: start: 20070808, end: 20070827
  22. DIPHENHYDRAMINE HYDROCHLORIDE [Concomitant]
     Indication: DRUG THERAPY
     Route: 048
     Dates: start: 20070320, end: 20070320

REACTIONS (8)
  - BLOOD IRON DECREASED [None]
  - HAEMORRHAGE [None]
  - LABOUR COMPLICATION [None]
  - NASOPHARYNGITIS [None]
  - PYREXIA [None]
  - STREPTOCOCCAL IDENTIFICATION TEST POSITIVE [None]
  - URINARY TRACT INFECTION [None]
  - VULVOVAGINAL MYCOTIC INFECTION [None]
